FAERS Safety Report 5839135-5 (Version None)
Quarter: 2008Q3

REPORT INFORMATION
  Report Type: 
  Country: None (occurrence: None)
  Receive Date: 20080808
  Receipt Date: 20080728
  Transmission Date: 20090109
  Serious: Yes (Hospitalization, Other)
  Sender: FDA-Public Use
  Company Number: US-PFIZER INC-2008038126

PATIENT
  Sex: Female
  Weight: 77.1 kg

DRUGS (8)
  1. CHANTIX [Suspect]
     Indication: TOBACCO USER
     Route: 048
     Dates: start: 20071101, end: 20080401
  2. CHANTIX [Suspect]
     Indication: SMOKING CESSATION THERAPY
  3. ALLEGRA [Concomitant]
     Route: 048
  4. ALBUTEROL [Concomitant]
     Route: 055
  5. OXYGEN [Concomitant]
  6. FLONASE [Concomitant]
     Route: 055
  7. ALBUTEROL [Concomitant]
     Route: 055
  8. ADVAIR DISKUS 100/50 [Concomitant]
     Route: 055

REACTIONS (23)
  - ASTHMA [None]
  - BODY MASS INDEX INCREASED [None]
  - CHEST DISCOMFORT [None]
  - CHRONIC OBSTRUCTIVE PULMONARY DISEASE [None]
  - COUGH [None]
  - DYSPNOEA [None]
  - FATIGUE [None]
  - FIBRIN D DIMER INCREASED [None]
  - HEART RATE INCREASED [None]
  - HYPERSENSITIVITY [None]
  - HYPOXIA [None]
  - INCORRECT DOSE ADMINISTERED [None]
  - INFLAMMATION [None]
  - LUNG DISORDER [None]
  - LUNG NEOPLASM [None]
  - NASAL CONGESTION [None]
  - NASAL TURBINATE HYPERTROPHY [None]
  - PROLONGED EXPIRATION [None]
  - PSYCHIATRIC SYMPTOM [None]
  - RALES [None]
  - RHINITIS ALLERGIC [None]
  - SLEEP APNOEA SYNDROME [None]
  - WHEEZING [None]
